FAERS Safety Report 18671612 (Version 2)
Quarter: 2020Q4

REPORT INFORMATION
  Report Type: Spontaneous
  Country: US (occurrence: US)
  Receive Date: 20201229
  Receipt Date: 20201229
  Transmission Date: 20210114
  Serious: No
  Sender: FDA-Public Use
  Company Number: US-JNJFOC-20201249241

PATIENT
  Age: 76 Year
  Sex: Female

DRUGS (1)
  1. IMODIUM A-D [Suspect]
     Active Substance: LOPERAMIDE HYDROCHLORIDE
     Indication: DIARRHOEA
     Dosage: 30 ML, THEN TWO DOSES OF 15 ML EACH
     Route: 048
     Dates: start: 20201219

REACTIONS (4)
  - Dizziness [Not Recovered/Not Resolved]
  - Drug ineffective [Unknown]
  - Product label issue [Unknown]
  - Diarrhoea [Not Recovered/Not Resolved]

NARRATIVE: CASE EVENT DATE: 20201220
